FAERS Safety Report 11118136 (Version 1)
Quarter: 2015Q2

REPORT INFORMATION
  Report Type: Spontaneous
  Country: US (occurrence: None)
  Receive Date: 20150515
  Receipt Date: 20150515
  Transmission Date: 20150821
  Serious: Yes (Other)
  Sender: FDA-Public Use
  Company Number: None

PATIENT
  Age: 58 Year
  Sex: Female

DRUGS (1)
  1. COPAXONE [Suspect]
     Active Substance: GLATIRAMER ACETATE
     Indication: MULTIPLE SCLEROSIS
     Dosage: STRENGTH: 40, DOSE FORM:  INJECTABLE, FREQUENCY:  TIW, DIAGNOSIS:  340, ROUTE:  SUBCUTANEOUS 057
     Route: 058
     Dates: start: 201503

REACTIONS (4)
  - Vaginal odour [None]
  - Vulvovaginal discomfort [None]
  - Anxiety [None]
  - Muscular weakness [None]

NARRATIVE: CASE EVENT DATE: 20150213
